FAERS Safety Report 7730167-9 (Version None)
Quarter: 2011Q3

REPORT INFORMATION
  Report Type: 
  Country: None (occurrence: None)
  Receive Date: 20110906
  Receipt Date: 20110830
  Transmission Date: 20111222
  Serious: Yes (Other)
  Sender: FDA-Public Use
  Company Number: PHHY2011CA68996

PATIENT
  Sex: Male

DRUGS (2)
  1. EXJADE [Suspect]
     Indication: MYELODYSPLASTIC SYNDROME
     Dosage: 2 DF, UNK
  2. PROCHLORPERAZINE [Concomitant]
     Indication: MALAISE
     Dosage: UNK UKN, UNK

REACTIONS (2)
  - DYSPEPSIA [None]
  - CARDIAC FAILURE CONGESTIVE [None]
